FAERS Safety Report 6068058-4 (Version None)
Quarter: 2009Q1

REPORT INFORMATION
  Report Type: 
  Country: None (occurrence: None)
  Receive Date: 20090206
  Receipt Date: 20090204
  Transmission Date: 20090719
  Serious: Yes (Life-Threatening)
  Sender: FDA-Public Use
  Company Number: BR-ASTRAZENECA-2009UW03268

PATIENT
  Age: 61 Year
  Sex: Female

DRUGS (1)
  1. ROPIVACAINE [Suspect]
     Indication: ANAESTHESIA

REACTIONS (16)
  - ADRENERGIC SYNDROME [None]
  - AKINESIA [None]
  - ATELECTASIS [None]
  - CARDIAC ARREST [None]
  - DIAPHRAGMATIC PARALYSIS [None]
  - EJECTION FRACTION [None]
  - ELECTROCARDIOGRAM ST SEGMENT ELEVATION [None]
  - HYPERCAPNIA [None]
  - HYPERTENSION [None]
  - NEUROMUSCULAR BLOCKADE [None]
  - RESPIRATORY ACIDOSIS [None]
  - RESPIRATORY FAILURE [None]
  - SOMNOLENCE [None]
  - STRESS CARDIOMYOPATHY [None]
  - TACHYCARDIA [None]
  - TROPONIN I INCREASED [None]
